FAERS Safety Report 5425733-X (Version None)
Quarter: 2007Q3

REPORT INFORMATION
  Report Type: 
  Country: None (occurrence: None)
  Receive Date: 20070731
  Receipt Date: 20070531
  Transmission Date: 20080115
  Serious: No
  Sender: FDA-Public Use
  Company Number: US200706000128

PATIENT
  Age: 71 Year
  Sex: Female

DRUGS (3)
  1. BYETTA [Suspect]
     Indication: TYPE 2 DIABETES MELLITUS
     Dosage: 5 UG, 2/D
     Dates: start: 20070427, end: 20070529
  2. METFORMIN HCL [Concomitant]
  3. GLIPIZIDE [Concomitant]

REACTIONS (4)
  - EARLY SATIETY [None]
  - INJECTION SITE ERYTHEMA [None]
  - NAUSEA [None]
  - RASH PRURITIC [None]
